FAERS Safety Report 5065568-3 (Version None)
Quarter: 2006Q3

REPORT INFORMATION
  Report Type: 
  Country: None (occurrence: None)
  Receive Date: 20060714
  Receipt Date: 20060512
  Transmission Date: 20061208
  Serious: No
  Sender: FDA-Public Use
  Company Number: 2006SP002038

PATIENT
  Sex: Female

DRUGS (2)
  1. LUNESTA [Suspect]
     Indication: INSOMNIA
     Dosage: 2 MG;HS;ORAL
     Route: 048
  2. PREDNISONE [Concomitant]

REACTIONS (3)
  - DRUG EFFECT DECREASED [None]
  - INSOMNIA [None]
  - SLEEP DISORDER [None]
